FAERS Safety Report 22629625 (Version 4)
Quarter: 2024Q4

REPORT INFORMATION
  Report Type: Report from Study
  Country: DE (occurrence: DE)
  Receive Date: 20230622
  Receipt Date: 20241119
  Transmission Date: 20250115
  Serious: Yes (Other)
  Sender: ROCHE
  Company Number: DE-ROCHE-3167443

PATIENT
  Age: 32 Year
  Sex: Female

DRUGS (13)
  1. OCREVUS [Suspect]
     Active Substance: OCRELIZUMAB
     Indication: Relapsing-remitting multiple sclerosis
     Route: 042
     Dates: start: 20220818
  2. OCREVUS [Suspect]
     Active Substance: OCRELIZUMAB
     Dosage: 600 MG EVERY 173 DAYS
     Route: 042
  3. NAPROXEN [Concomitant]
     Active Substance: NAPROXEN
  4. TELMISARTAN [Concomitant]
     Active Substance: TELMISARTAN
  5. PREGABALIN [Concomitant]
     Active Substance: PREGABALIN
  6. PREGABALIN [Concomitant]
     Active Substance: PREGABALIN
  7. BISOPROLOL [Concomitant]
     Active Substance: BISOPROLOL
  8. JODETTEN [Concomitant]
  9. PANTOPRAZOLE [Concomitant]
     Active Substance: PANTOPRAZOLE
  10. LEVOMIN (GERMANY) [Concomitant]
  11. FOSTER [Concomitant]
     Active Substance: BECLOMETHASONE\FORMOTEROL
  12. MAGNESIUM [Concomitant]
     Active Substance: MAGNESIUM
  13. TORSEMIDE [Concomitant]
     Active Substance: TORSEMIDE

REACTIONS (15)
  - Asthenia [Recovered/Resolved]
  - Fatigue [Recovered/Resolved]
  - COVID-19 [Recovered/Resolved]
  - Nausea [Recovered/Resolved]
  - Vomiting [Recovered/Resolved]
  - Diabetes mellitus [Not Recovered/Not Resolved]
  - Relapsing-remitting multiple sclerosis [Recovering/Resolving]
  - Muscular weakness [Not Recovered/Not Resolved]
  - Ligament rupture [Not Recovered/Not Resolved]
  - Pneumonia [Not Recovered/Not Resolved]
  - Norovirus infection [Recovered/Resolved]
  - Nasopharyngitis [Recovering/Resolving]
  - Synovial cyst [Not Recovered/Not Resolved]
  - Meniscus injury [Not Recovered/Not Resolved]
  - Pyrexia [Not Recovered/Not Resolved]

NARRATIVE: CASE EVENT DATE: 20220818
